FAERS Safety Report 10161637 (Version 2)
Quarter: 2014Q4

REPORT INFORMATION
  Report Type: Spontaneous
  Country: JP (occurrence: JP)
  Receive Date: 20140509
  Receipt Date: 20141024
  Transmission Date: 20150528
  Serious: Yes (Hospitalization)
  Sender: FDA-Public Use
  Company Number: JP-BRISTOL-MYERS SQUIBB COMPANY-20723722

PATIENT
  Age: 55 Year
  Sex: Male

DRUGS (3)
  1. ABILIFY [Suspect]
     Active Substance: ARIPIPRAZOLE
     Indication: EMOTIONAL DISORDER
     Dosage: DOSE INCREASED TO 12 MG/DAY?30AUG2010-21SEP2010:12MG?LAST DOSE:21SEP10
     Route: 048
     Dates: start: 20100823, end: 20100921
  2. NITRAZEPAM [Concomitant]
     Active Substance: NITRAZEPAM
  3. BENFOTIAMINE + B6 + B12 [Concomitant]

REACTIONS (3)
  - Restlessness [Unknown]
  - Persecutory delusion [Recovered/Resolved]
  - Off label use [Unknown]

NARRATIVE: CASE EVENT DATE: 20100830
